FAERS Safety Report 16150922 (Version 5)
Quarter: 2020Q2

REPORT INFORMATION
  Report Type: Spontaneous
  Country: US (occurrence: US)
  Receive Date: 20190402
  Receipt Date: 20200506
  Transmission Date: 20200713
  Serious: No
  Sender: FDA-Public Use
  Company Number: US-SA-2019SA089315

PATIENT
  Age: 40 Year
  Sex: Female

DRUGS (8)
  1. DUPIXENT [Suspect]
     Active Substance: DUPILUMAB
     Indication: DERMATITIS ATOPIC
  2. CYCLOBENZAPRIN [Concomitant]
     Active Substance: CYCLOBENZAPRINE
  3. FAMOTIDINE. [Concomitant]
     Active Substance: FAMOTIDINE
  4. ONDANSETRON [Concomitant]
     Active Substance: ONDANSETRON
  5. IBUPROFEN. [Concomitant]
     Active Substance: IBUPROFEN
  6. MULTIPLE VITAMINS [Concomitant]
     Active Substance: VITAMINS
  7. DUPIXENT [Suspect]
     Active Substance: DUPILUMAB
     Indication: PSORIASIS
     Dosage: 300 MG, QOW
     Route: 058
     Dates: start: 20190329
  8. DOXEPIN [Concomitant]
     Active Substance: DOXEPIN

REACTIONS (3)
  - Product use in unapproved indication [Not Recovered/Not Resolved]
  - Rash [Unknown]
  - Psoriasis [Not Recovered/Not Resolved]
